FAERS Safety Report 9602060 (Version 1)
Quarter: 2013Q4

REPORT INFORMATION
  Report Type: Spontaneous
  Country: US (occurrence: None)
  Receive Date: 20131004
  Receipt Date: 20131004
  Transmission Date: 20140711
  Serious: Yes (Hospitalization)
  Sender: FDA-Public Use
  Company Number: None

PATIENT
  Age: 67 Year
  Sex: Male
  Weight: 68.8 kg

DRUGS (1)
  1. MORPHINE [Suspect]
     Route: 048
     Dates: start: 20130913

REACTIONS (1)
  - Mental status changes [None]
